FAERS Safety Report 18928432 (Version 1)
Quarter: 2021Q1

REPORT INFORMATION
  Report Type: Report from Study
  Country: CA (occurrence: CA)
  Receive Date: 20210223
  Receipt Date: 20210223
  Transmission Date: 20210420
  Serious: Yes (Hospitalization)
  Sender: FDA-Public Use
  Company Number: CA-SHIRE-CA201924130AA

PATIENT

DRUGS (2)
  1. GAMMAGARD LIQUID [Suspect]
     Active Substance: HUMAN IMMUNOGLOBULIN G
     Indication: PRIMARY IMMUNODEFICIENCY SYNDROME
     Dosage: 8 GRAM, 1X/WEEK
     Route: 058
     Dates: start: 20180815
  2. HIZENTRA [Concomitant]
     Active Substance: HUMAN IMMUNOGLOBULIN G
     Indication: ILL-DEFINED DISORDER

REACTIONS (6)
  - Asthenia [Unknown]
  - Discomfort [Unknown]
  - Weight decreased [Unknown]
  - General physical health deterioration [Unknown]
  - Platelet count abnormal [Unknown]
  - Infusion site pain [Unknown]
